FAERS Safety Report 19714283 (Version 1)
Quarter: 2021Q3

REPORT INFORMATION
  Report Type: Spontaneous
  Country: US (occurrence: US)
  Receive Date: 20210817
  Receipt Date: 20210817
  Transmission Date: 20211014
  Serious: No
  Sender: FDA-Public Use
  Company Number: None

PATIENT
  Age: 66 Year
  Sex: Male
  Weight: 78.65 kg

DRUGS (23)
  1. ONDANSETRON [Concomitant]
     Active Substance: ONDANSETRON
  2. PANTOPRAZOLE [Concomitant]
     Active Substance: PANTOPRAZOLE
  3. TAMSULOSIN [Concomitant]
     Active Substance: TAMSULOSIN
  4. INLYTA [Suspect]
     Active Substance: AXITINIB
     Indication: RENAL CANCER
     Route: 048
     Dates: start: 20210716
  5. ALBUTEROL NEB SOLUTION [Concomitant]
  6. ASPIRIN. [Concomitant]
     Active Substance: ASPIRIN
  7. BRILINTA [Concomitant]
     Active Substance: TICAGRELOR
  8. ISOSORBIDE MONONITRATE ER [Concomitant]
     Active Substance: ISOSORBIDE MONONITRATE
  9. LACTOBACILLUS [Concomitant]
     Active Substance: LACTOBACILLUS ACIDOPHILUS
  10. CETIRIZINE [Concomitant]
     Active Substance: CETIRIZINE HYDROCHLORIDE
  11. FLUTICASONE. [Concomitant]
     Active Substance: FLUTICASONE
  12. LOMOTIL [Concomitant]
     Active Substance: ATROPINE SULFATE\DIPHENOXYLATE HYDROCHLORIDE
  13. MULTI VITAMIN [Concomitant]
     Active Substance: VITAMINS
  14. ZOLPIDEM [Concomitant]
     Active Substance: ZOLPIDEM TARTRATE
  15. DULOXETINE. [Concomitant]
     Active Substance: DULOXETINE
  16. VITAMIN D [Concomitant]
     Active Substance: VITAMIN D NOS
  17. FERROUS SULFATE. [Concomitant]
     Active Substance: FERROUS SULFATE
  18. LISINOPRIL. [Concomitant]
     Active Substance: LISINOPRIL
  19. SILDENAFIL. [Concomitant]
     Active Substance: SILDENAFIL
  20. SIMVASTATIN. [Concomitant]
     Active Substance: SIMVASTATIN
  21. METOPROLOL. [Concomitant]
     Active Substance: METOPROLOL
  22. NITROSTAT [Concomitant]
     Active Substance: NITROGLYCERIN
  23. SYMBICORT [Concomitant]
     Active Substance: BUDESONIDE\FORMOTEROL FUMARATE DIHYDRATE

REACTIONS (2)
  - Diarrhoea [None]
  - Weight decreased [None]
